FAERS Safety Report 8281442-3 (Version None)
Quarter: 2012Q2

REPORT INFORMATION
  Report Type: 
  Country: None (occurrence: None)
  Receive Date: 20120413
  Receipt Date: 20120403
  Transmission Date: 20120825
  Serious: Yes (Hospitalization)
  Sender: FDA-Public Use
  Company Number: DE-B.I. PHARMACEUTICALS,INC./RIDGEFIELD-2011-RD-00130DE

PATIENT
  Sex: Male
  Weight: 77 kg

DRUGS (6)
  1. CIPROFLOXACIN [Suspect]
     Indication: URINARY TRACT INFECTION
     Dosage: 500 MG
     Route: 048
     Dates: start: 20110725, end: 20110728
  2. AMPICILLIN AND SULBACTAM [Suspect]
     Indication: URINARY TRACT INFECTION
     Dosage: 1500 MG
     Route: 048
     Dates: start: 20110721, end: 20110724
  3. SURGERY OF PROSTAT HYPERTROPHY [Suspect]
     Indication: BENIGN PROSTATIC HYPERPLASIA
     Dates: start: 20110727, end: 20110727
  4. BLIND (BI 1356) [Suspect]
     Indication: TYPE 2 DIABETES MELLITUS
     Dates: start: 20110615
  5. TAMSULOSIN HCL [Suspect]
     Indication: BENIGN PROSTATIC HYPERPLASIA
     Dosage: 40 MG
     Route: 048
     Dates: start: 20110701, end: 20110727
  6. SURGERY OF PHIMOSE [Concomitant]
     Indication: PHIMOSIS
     Dates: start: 20110727, end: 20110727

REACTIONS (3)
  - BENIGN PROSTATIC HYPERPLASIA [None]
  - URINARY TRACT INFECTION [None]
  - PHIMOSIS [None]
